FAERS Safety Report 9727581 (Version 2)
Quarter: 2014Q1

REPORT INFORMATION
  Report Type: Spontaneous
  Country: US (occurrence: US)
  Receive Date: 20131203
  Receipt Date: 20140110
  Transmission Date: 20141002
  Serious: Yes (Death, Hospitalization)
  Sender: FDA-Public Use
  Company Number: US-FRI-1000051783

PATIENT
  Age: 45 Year
  Sex: Male
  Weight: 100 kg

DRUGS (11)
  1. CAMPRAL [Suspect]
     Indication: ALCOHOLISM
     Dosage: 1998MG
     Route: 048
     Dates: start: 20121208
  2. METOPROLOL TARTRATE [Concomitant]
     Indication: HYPERTENSION
     Dosage: 25MG
  3. ANTABUSE [Concomitant]
     Indication: ALCOHOLISM
     Dosage: 500MG
  4. NALTREXONE [Concomitant]
     Dosage: 50MG
  5. AMLODIPINE [Concomitant]
     Indication: HYPERTENSION
     Dosage: 10MG
  6. FOLIC ACID [Concomitant]
     Dosage: 1MG
  7. CITALOPRAM [Concomitant]
     Dosage: 80MG
     Route: 048
  8. PRILOSEC [Concomitant]
     Dosage: 20MG
  9. HYDROCHLOROTHIAZIDE [Concomitant]
     Indication: HYPERTENSION
     Dosage: 25MG
  10. ASA [Concomitant]
     Dosage: 325MG
  11. FISH OIL [Concomitant]
     Dosage: TWICE DAILY

REACTIONS (2)
  - Death [Fatal]
  - Alcohol withdrawal syndrome [Unknown]
